FAERS Safety Report 7983805-X (Version None)
Quarter: 2011Q4

REPORT INFORMATION
  Report Type: 
  Country: None (occurrence: None)
  Receive Date: 20111216
  Receipt Date: 20111213
  Transmission Date: 20120403
  Serious: Yes (Disabling)
  Sender: FDA-Public Use
  Company Number: US-ACCORD-011616

PATIENT
  Age: 75 Year
  Sex: Female
  Weight: 82 kg

DRUGS (9)
  1. FISH OIL [Concomitant]
     Indication: SUPPLEMENTATION THERAPY
     Dosage: 1 CAPSULE
     Route: 048
  2. ANASTROZOLE [Suspect]
     Indication: BREAST CANCER
     Route: 048
     Dates: start: 20100901
  3. AMLODIPINE [Concomitant]
     Indication: HYPERTENSION
     Route: 048
  4. HYDRALAZINE HCL [Concomitant]
     Indication: HYPERTENSION
     Route: 048
  5. CLONIDINE [Concomitant]
     Indication: HYPERTENSION
     Route: 048
  6. ASPIRIN [Concomitant]
     Dosage: FREQUENCY - 1XW
     Route: 048
  7. VITAMIN D [Concomitant]
     Indication: SUPPLEMENTATION THERAPY
     Route: 048
  8. CARVEDILOL [Concomitant]
     Indication: HYPERTENSION
     Route: 048
  9. FUROSEMIDE [Concomitant]
     Route: 048

REACTIONS (1)
  - DENTAL CARIES [None]
